FAERS Safety Report 7082501-3 (Version None)
Quarter: 2010Q4

REPORT INFORMATION
  Report Type: 
  Country: None (occurrence: None)
  Receive Date: 20101104
  Receipt Date: 20101022
  Transmission Date: 20110411
  Serious: Yes (Hospitalization, Other)
  Sender: FDA-Public Use
  Company Number: IT-RANBAXY-2010RR-39191

PATIENT
  Age: 48 Year
  Sex: Male

DRUGS (9)
  1. AMOXICILLIN [Suspect]
     Indication: PHARYNGITIS
     Dosage: 2 G, UNK
  2. SIMVASTATIN [Concomitant]
  3. ASPIRIN [Concomitant]
  4. NITRATES [Concomitant]
     Route: 062
  5. ATENOLOL [Concomitant]
  6. PACLITAXEL STENT [Concomitant]
  7. CLOPIDOGREL [Concomitant]
     Dosage: 300 MG, UNK
  8. ABCIXIMAB [Concomitant]
     Dosage: 19ML/H FOR 12 H
  9. ABCIXIMAB [Concomitant]
     Dosage: 75 MG, UNK

REACTIONS (1)
  - KOUNIS SYNDROME [None]
